FAERS Safety Report 18622611 (Version 1)
Quarter: 2020Q4

REPORT INFORMATION
  Report Type: Spontaneous
  Country: CN (occurrence: CN)
  Receive Date: 20201216
  Receipt Date: 20201216
  Transmission Date: 20210114
  Serious: Yes (Other)
  Sender: FDA-Public Use
  Company Number: CN-PFIZER INC-2020490175

PATIENT
  Age: 76 Year
  Sex: Male
  Weight: 40 kg

DRUGS (1)
  1. TAZOCIN [Suspect]
     Active Substance: PIPERACILLIN SODIUM\TAZOBACTAM SODIUM
     Indication: PNEUMONIA
     Dosage: 4.5 G, 3X/DAY (EVERY 8 HOURS)
     Route: 041
     Dates: start: 20201202, end: 20201203

REACTIONS (4)
  - Pyrexia [Recovering/Resolving]
  - Temperature intolerance [Unknown]
  - Hyperpyrexia [Unknown]
  - Chills [Unknown]

NARRATIVE: CASE EVENT DATE: 202012
